FAERS Safety Report 5078602-1 (Version None)
Quarter: 2006Q3

REPORT INFORMATION
  Report Type: 
  Country: None (occurrence: None)
  Receive Date: 20060808
  Receipt Date: 20060724
  Transmission Date: 20061208
  Serious: Yes (Other)
  Sender: FDA-Public Use
  Company Number: A-CH2006-12703

PATIENT
  Age: 48 Year
  Sex: Female
  Weight: 55 kg

DRUGS (7)
  1. TRACLEER [Suspect]
     Indication: PULMONARY HYPERTENSION
     Dosage: SEE IMAGE
     Route: 048
     Dates: start: 20060409, end: 20060508
  2. TRACLEER [Suspect]
     Indication: PULMONARY HYPERTENSION
     Dosage: SEE IMAGE
     Route: 048
     Dates: start: 20060509, end: 20060524
  3. ASCAL (ACETYLSALICYLATE CALCIUM) [Concomitant]
  4. MONO-CEDOCARD (ISOSORBIDE MONONITRATE) [Concomitant]
  5. DYTAC (TRIAMTERENE) [Concomitant]
  6. FUROSEMIDE [Concomitant]
  7. SPIRONOLACTONE [Concomitant]

REACTIONS (4)
  - ANGIONEUROTIC OEDEMA [None]
  - ASPARTATE AMINOTRANSFERASE INCREASED [None]
  - RASH [None]
  - VOMITING [None]
